FAERS Safety Report 24756739 (Version 1)
Quarter: 2024Q4

REPORT INFORMATION
  Report Type: Spontaneous
  Country: CH (occurrence: CA)
  Receive Date: 20241220
  Receipt Date: 20241220
  Transmission Date: 20250114
  Serious: Yes (Other)
  Sender: Kenvue
  Company Number: CH-JOHNSON + JOHNSON CONSUMER SERVICES EAME-20241205441

PATIENT

DRUGS (1)
  1. IBUPROFEN [Suspect]
     Active Substance: IBUPROFEN
     Indication: Urticaria chronic
     Route: 048

REACTIONS (2)
  - Product use in unapproved indication [Unknown]
  - Angioedema [Unknown]
